FAERS Safety Report 15423728 (Version 2)
Quarter: 2018Q3

REPORT INFORMATION
  Report Type: Spontaneous
  Country: US (occurrence: US)
  Receive Date: 20180925
  Receipt Date: 20180928
  Transmission Date: 20181010
  Serious: Yes (Hospitalization)
  Sender: FDA-Public Use
  Company Number: US-FRESENIUS MEDICAL CARE RENAL THERAPIES GROUP-FMC-1809-001719

PATIENT
  Age: 66 Year
  Sex: Male
  Weight: 102.4 kg

DRUGS (8)
  1. WARFARIN [Concomitant]
     Active Substance: WARFARIN
  2. NOVOLIN [Concomitant]
     Active Substance: INSULIN HUMAN
  3. DELFLEX [Suspect]
     Active Substance: CALCIUM CHLORIDE\DEXTROSE\MAGNESIUM CHLORIDE\SODIUM CHLORIDE\SODIUM LACTATE
     Indication: END STAGE RENAL DISEASE
     Route: 033
  4. LOSARTAN. [Concomitant]
     Active Substance: LOSARTAN
  5. CINACALCET. [Concomitant]
     Active Substance: CINACALCET
  6. HYDRALAZINE [Concomitant]
     Active Substance: HYDRALAZINE HYDROCHLORIDE
  7. FOSRENOL [Concomitant]
     Active Substance: LANTHANUM CARBONATE
  8. METOPROLOL. [Concomitant]
     Active Substance: METOPROLOL

REACTIONS (4)
  - Acute respiratory failure [Recovered/Resolved]
  - Hypoglycaemia [Recovered/Resolved]
  - Pneumonia [Recovered/Resolved]
  - Fluid overload [Recovered/Resolved]

NARRATIVE: CASE EVENT DATE: 20180915
